FAERS Safety Report 15150981 (Version 1)
Quarter: 2018Q3

REPORT INFORMATION
  Report Type: Spontaneous
  Country: US (occurrence: US)
  Receive Date: 20180716
  Receipt Date: 20180716
  Transmission Date: 20181010
  Serious: Yes (Other)
  Sender: FDA-Public Use
  Company Number: US-SA-2018SA048703

PATIENT
  Age: 52 Year
  Sex: Female
  Weight: 93.44 kg

DRUGS (3)
  1. TAXOTERE [Suspect]
     Active Substance: DOCETAXEL
     Dosage: UNK UNK,Q3W
     Route: 051
     Dates: start: 20110902, end: 20110902
  2. TAXOTERE [Suspect]
     Active Substance: DOCETAXEL
     Indication: BREAST CANCER
     Dosage: UNK UNK,Q3W
     Route: 042
     Dates: start: 20110630, end: 20110630
  3. PARAPLATIN [Concomitant]
     Active Substance: CARBOPLATIN
     Route: 065

REACTIONS (2)
  - Psychological trauma [Unknown]
  - Alopecia [Recovering/Resolving]

NARRATIVE: CASE EVENT DATE: 20110930
